FAERS Safety Report 5441320-1 (Version None)
Quarter: 2007Q3

REPORT INFORMATION
  Report Type: 
  Country: None (occurrence: None)
  Receive Date: 20070903
  Receipt Date: 20070828
  Transmission Date: 20080115
  Serious: Yes (Hospitalization)
  Sender: FDA-Public Use
  Company Number: PHFR2007GB01386

PATIENT
  Age: 3 Year
  Sex: Male
  Weight: 14.3 kg

DRUGS (2)
  1. TEGRETOL [Suspect]
     Indication: EPILEPSY
     Dosage: 150 MG, TID
     Route: 048
     Dates: start: 20060101, end: 20070801
  2. LAMOTRIGINE [Concomitant]
     Indication: EPILEPSY
     Dosage: 200MG/DAY
     Route: 048
     Dates: start: 20070301

REACTIONS (3)
  - DRUG LEVEL DECREASED [None]
  - STATUS EPILEPTICUS [None]
  - TREATMENT NONCOMPLIANCE [None]
